FAERS Safety Report 4538171-9 (Version None)
Quarter: 2004Q4

REPORT INFORMATION
  Report Type: 
  Country: None (occurrence: None)
  Receive Date: 20041223
  Receipt Date: 20041223
  Transmission Date: 20050328
  Serious: Yes (Other)
  Sender: FDA-Public Use
  Company Number: None

PATIENT
  Age: 22 Year
  Sex: Female
  Weight: 52.1637 kg

DRUGS (1)
  1. PENICILLIN [Suspect]
     Indication: PHARYNGITIS STREPTOCOCCAL
     Dosage: 250 QID ORAL
     Route: 048
     Dates: start: 20041215, end: 20041219

REACTIONS (3)
  - ARTHRALGIA [None]
  - PETECHIAE [None]
  - PURPURA [None]
